FAERS Safety Report 7247262-3 (Version None)
Quarter: 2011Q1

REPORT INFORMATION
  Report Type: 
  Country: None (occurrence: None)
  Receive Date: 20110127
  Receipt Date: 20110121
  Transmission Date: 20110831
  Serious: Yes (Hospitalization)
  Sender: FDA-Public Use
  Company Number: A0795232A

PATIENT
  Age: 55 Year
  Sex: Male

DRUGS (11)
  1. AVANDIA [Suspect]
     Dates: start: 19990501
  2. ELAVIL [Concomitant]
  3. CELEXA [Concomitant]
  4. METOPROLOL [Concomitant]
  5. GEMFIBROZIL [Concomitant]
  6. AVANDAMET [Suspect]
  7. TRICOR [Concomitant]
  8. RANITIDINE [Concomitant]
  9. LANTUS [Concomitant]
  10. METFORMIN [Concomitant]
  11. LISINOPRIL [Concomitant]

REACTIONS (3)
  - CORONARY ARTERY DISEASE [None]
  - CARDIAC FAILURE CONGESTIVE [None]
  - MYOCARDIAL INFARCTION [None]
